FAERS Safety Report 5657571-7 (Version None)
Quarter: 2008Q1

REPORT INFORMATION
  Report Type: 
  Country: None (occurrence: None)
  Receive Date: 20080307
  Receipt Date: 20080307
  Transmission Date: 20080703
  Serious: Yes (Hospitalization)
  Sender: FDA-Public Use
  Company Number: None

PATIENT
  Sex: Female
  Weight: 73.9363 kg

DRUGS (1)
  1. ELOXATIN [Suspect]
     Indication: COLON CANCER
     Dosage: 150ML Q14D IV DRIP
     Route: 041

REACTIONS (4)
  - CHILLS [None]
  - HEART RATE DECREASED [None]
  - MUSCLE SPASMS [None]
  - NAUSEA [None]
